FAERS Safety Report 23295643 (Version 1)
Quarter: 2023Q4

REPORT INFORMATION
  Report Type: Spontaneous
  Country: US (occurrence: US)
  Receive Date: 20231214
  Receipt Date: 20231214
  Transmission Date: 20240109
  Serious: No
  Sender: FDA-Public Use
  Company Number: US-ALVOGEN-2023092502

PATIENT
  Sex: Female

DRUGS (2)
  1. FENTANYL [Suspect]
     Active Substance: FENTANYL\FENTANYL CITRATE
     Indication: Pain
     Dosage: 1. NDC 47781-428-47?2. STRENGTH: 100 MCG?3. EXPIRATION DATE: AUG-2026.
     Route: 062
     Dates: start: 2023
  2. FENTANYL [Suspect]
     Active Substance: FENTANYL\FENTANYL CITRATE
     Indication: Pain
     Dosage: 1. NDC 47781-426-47?2. STRENGTH: 50 MCG?3. EXPIRATION DATE: AUG-2026.
     Route: 062
     Dates: start: 2023

REACTIONS (4)
  - Pyrexia [Recovered/Resolved]
  - Device malfunction [Unknown]
  - Device adhesion issue [Unknown]
  - Wrong technique in device usage process [Unknown]

NARRATIVE: CASE EVENT DATE: 20230101
